FAERS Safety Report 6455230-4 (Version None)
Quarter: 2009Q4

REPORT INFORMATION
  Report Type: 
  Country: None (occurrence: None)
  Receive Date: 20091124
  Receipt Date: 20090928
  Transmission Date: 20100525
  Serious: No
  Sender: FDA-Public Use
  Company Number: US-AMGEN-US366559

PATIENT
  Sex: Male

DRUGS (5)
  1. NPLATE [Suspect]
     Indication: THROMBOCYTOPENIA
  2. METOPROLOL TARTRATE [Concomitant]
  3. ACTOS [Concomitant]
  4. FERRO ^HAESSLE^ [Concomitant]
  5. LOVASTATIN [Concomitant]

REACTIONS (4)
  - ARTHRALGIA [None]
  - MUSCULOSKELETAL PAIN [None]
  - MYALGIA [None]
  - OEDEMA PERIPHERAL [None]
